FAERS Safety Report 18851532 (Version 1)
Quarter: 2021Q1

REPORT INFORMATION
  Report Type: Spontaneous
  Country: US (occurrence: US)
  Receive Date: 20210204
  Receipt Date: 20210204
  Transmission Date: 20210420
  Serious: No
  Sender: FDA-Public Use
  Company Number: None

PATIENT
  Age: 13 Year
  Sex: Female
  Weight: 48.15 kg

DRUGS (2)
  1. CONCERTA [Concomitant]
     Active Substance: METHYLPHENIDATE HYDROCHLORIDE
  2. METHYLPHENID OSM ER 36MG TAB LAN [Suspect]
     Active Substance: METHYLPHENIDATE
     Indication: ATTENTION DEFICIT HYPERACTIVITY DISORDER
     Dosage: ?          QUANTITY:30 TABLET(S);?
     Route: 048
     Dates: start: 20210125

REACTIONS (3)
  - Therapeutic product effect decreased [None]
  - Product quality issue [None]
  - Disturbance in attention [None]

NARRATIVE: CASE EVENT DATE: 20210125
